FAERS Safety Report 26207712 (Version 1)
Quarter: 2025Q4

REPORT INFORMATION
  Report Type: Other
  Country: GB (occurrence: GB)
  Receive Date: 20251229
  Receipt Date: 20251229
  Transmission Date: 20260118
  Serious: Yes (Disabling, Other)
  Sender: MACLEODS
  Company Number: None

PATIENT

DRUGS (4)
  1. LEVOFLOXACIN [Suspect]
     Active Substance: LEVOFLOXACIN
     Indication: Helicobacter infection
     Dosage: 250MG X2 PER DAY
     Dates: start: 20251130, end: 20251201
  2. TETRACYCLINE [Concomitant]
     Active Substance: TETRACYCLINE
     Indication: Helicobacter infection
     Dates: start: 20251130, end: 20251214
  3. LANSOPRAZOLE [Concomitant]
     Active Substance: LANSOPRAZOLE
     Indication: Helicobacter infection
     Dates: start: 20251130, end: 20251214
  4. PEPTO-BISMOL [Concomitant]
     Active Substance: BISMUTH SUBSALICYLATE
     Indication: Helicobacter infection
     Dates: start: 20251130, end: 20251214

REACTIONS (2)
  - Tendon disorder [Not Recovered/Not Resolved]
  - Anxiety [Recovered/Resolved]

NARRATIVE: CASE EVENT DATE: 20251201
